FAERS Safety Report 6925864-9 (Version None)
Quarter: 2010Q3

REPORT INFORMATION
  Report Type: 
  Country: None (occurrence: None)
  Receive Date: 20100813
  Receipt Date: 20100813
  Transmission Date: 20110219
  Serious: No
  Sender: FDA-Public Use
  Company Number: None

PATIENT
  Sex: Female

DRUGS (1)
  1. BETASERON [Suspect]
     Dosage: 3 MG SC
     Route: 058
     Dates: start: 20060119

REACTIONS (3)
  - APPENDICECTOMY [None]
  - RECTAL DISCHARGE [None]
  - VAGINAL DISCHARGE [None]
